FAERS Safety Report 8796439 (Version 2)
Quarter: 2012Q4

REPORT INFORMATION
  Report Type: 
  Country: US (occurrence: US)
  Receive Date: 20120920
  Receipt Date: 20121108
  Transmission Date: 20130627
  Serious: Yes (Death, Hospitalization)
  Sender: FDA-Public Use
  Company Number: PHEH2012US018260

PATIENT
  Sex: Female

DRUGS (6)
  1. AFINITOR [Suspect]
     Indication: BREAST CANCER
     Dosage: 10 mg, daily
     Route: 048
     Dates: start: 20120814, end: 20120910
  2. DEXILANT [Concomitant]
     Indication: GASTRIC DISORDER
     Dosage: 60 mg, daily
     Route: 048
  3. AROMASIN [Concomitant]
     Indication: BREAST CANCER
     Dosage: 25 mg, daily
     Route: 048
     Dates: start: 201208, end: 201209
  4. OXYCODONE [Concomitant]
     Indication: PAIN
     Route: 048
  5. TRIAMTEREEN/HYDROCHLOOTTHIAZIDE [Concomitant]
     Indication: BLOOD PRESSURE
     Route: 048
  6. HALCION [Concomitant]
     Indication: SLEEP DISORDER
     Dosage: 0.25 mg, QHS

REACTIONS (3)
  - Neoplasm progression [Fatal]
  - Malignant neoplasm progression [Fatal]
  - Mental status changes [Unknown]
